FAERS Safety Report 18475665 (Version 1)
Quarter: 2020Q4

REPORT INFORMATION
  Report Type: Report from Study
  Country: FR (occurrence: FR)
  Receive Date: 20201106
  Receipt Date: 20201106
  Transmission Date: 20210114
  Serious: Yes (Hospitalization)
  Sender: FDA-Public Use
  Company Number: FR-TAKEDA-2020TUS045995

PATIENT

DRUGS (32)
  1. TEDUGLUTIDE [Suspect]
     Active Substance: TEDUGLUTIDE
     Indication: SHORT-BOWEL SYNDROME
     Dosage: 3.6 MILLIGRAM (DAILY DOSE 0.05 MG/KG), TED DOSES PER WEEK 7
     Route: 065
     Dates: start: 20161004, end: 20161103
  2. TEDUGLUTIDE [Suspect]
     Active Substance: TEDUGLUTIDE
     Indication: SHORT-BOWEL SYNDROME
     Dosage: 3.6 MILLIGRAM (DAILY DOSE 0.05 MG/KG), TED DOSES PER WEEK 7
     Route: 065
     Dates: start: 20161004, end: 20161103
  3. TEDUGLUTIDE [Suspect]
     Active Substance: TEDUGLUTIDE
     Dosage: 3.8 MILLIGRAM (DAILY DOSE 0.05 MG/KG), TED DOSES PER WEEK 7
     Route: 065
     Dates: start: 20161104, end: 20161208
  4. TEDUGLUTIDE [Suspect]
     Active Substance: TEDUGLUTIDE
     Dosage: 3.6 MILLIGRAM (DAILY DOSE 0.05 MG/KG), TED DOSES PER WEEK 7
     Dates: start: 20161209, end: 20170403
  5. TEDUGLUTIDE [Suspect]
     Active Substance: TEDUGLUTIDE
     Dosage: 3.4 MILLIGRAM (DAILY DOSE 0.05 MG/KG), TED DOSES PER WEEK 7
     Route: 065
     Dates: start: 20170404, end: 20171016
  6. TEDUGLUTIDE [Suspect]
     Active Substance: TEDUGLUTIDE
     Dosage: 3.8 MILLIGRAM (DAILY DOSE 0.05 MG/KG), TED DOSES PER WEEK 7
     Route: 065
     Dates: start: 20161104, end: 20161208
  7. TEDUGLUTIDE [Suspect]
     Active Substance: TEDUGLUTIDE
     Dosage: 3.4 MILLIGRAM (DAILY DOSE 0.05 MG/KG), TED DOSES PER WEEK 7
     Route: 065
     Dates: start: 20170404, end: 20171016
  8. TEDUGLUTIDE [Suspect]
     Active Substance: TEDUGLUTIDE
     Dosage: 3.2 MILLIGRAM (DAILY DOSE 0.05 MG/KG), TED DOSES PER WEEK 7
     Route: 065
     Dates: start: 20171017, end: 20180129
  9. TEDUGLUTIDE [Suspect]
     Active Substance: TEDUGLUTIDE
     Dosage: 3.2 MILLIGRAM (DAILY DOSE 0.05 MG/KG), TED DOSES PER WEEK 7
     Route: 065
     Dates: start: 20171017, end: 20180129
  10. FUROSEMIDE. [Concomitant]
     Active Substance: FUROSEMIDE
     Indication: HYPERKALAEMIA
     Dosage: 1 UNKNOWN UNIT, QD
     Route: 065
     Dates: start: 20180308, end: 20180308
  11. GLUCOSE;INSULIN [Concomitant]
     Indication: HYPERKALAEMIA
     Dosage: 10 UNIT, QD
     Route: 065
     Dates: start: 20180218, end: 20180218
  12. TEDUGLUTIDE [Suspect]
     Active Substance: TEDUGLUTIDE
     Indication: SHORT-BOWEL SYNDROME
     Dosage: 3.6 MILLIGRAM (DAILY DOSE 0.05 MG/KG), TED DOSES PER WEEK 7
     Route: 065
     Dates: start: 20161004, end: 20161103
  13. TEDUGLUTIDE [Suspect]
     Active Substance: TEDUGLUTIDE
     Dosage: 3.6 MILLIGRAM (DAILY DOSE 0.05 MG/KG), TED DOSES PER WEEK 7
     Dates: start: 20161209, end: 20170403
  14. TEDUGLUTIDE [Suspect]
     Active Substance: TEDUGLUTIDE
     Dosage: 3 MILLIGRAM (DAILY DOSE 0.05 MG/KG), TED DOSES PER WEEK 7
     Route: 065
     Dates: start: 20180130, end: 20180219
  15. TEDUGLUTIDE [Suspect]
     Active Substance: TEDUGLUTIDE
     Dosage: 3 MILLIGRAM (DAILY DOSE 0.05 MG/KG), TED DOSES PER WEEK 7
     Route: 065
     Dates: start: 20180130, end: 20180219
  16. TEDUGLUTIDE [Suspect]
     Active Substance: TEDUGLUTIDE
     Dosage: 3 MILLIGRAM (DAILY DOSE 0.05 MG/KG), TED DOSES PER WEEK 7
     Route: 065
     Dates: start: 20180308, end: 20180313
  17. TEDUGLUTIDE [Suspect]
     Active Substance: TEDUGLUTIDE
     Dosage: 3.8 MILLIGRAM (DAILY DOSE 0.05 MG/KG), TED DOSES PER WEEK 7
     Route: 065
     Dates: start: 20161104, end: 20161208
  18. TEDUGLUTIDE [Suspect]
     Active Substance: TEDUGLUTIDE
     Dosage: 3.8 MILLIGRAM (DAILY DOSE 0.05 MG/KG), TED DOSES PER WEEK 7
     Route: 065
     Dates: start: 20161104, end: 20161208
  19. TEDUGLUTIDE [Suspect]
     Active Substance: TEDUGLUTIDE
     Dosage: 3.6 MILLIGRAM (DAILY DOSE 0.05 MG/KG), TED DOSES PER WEEK 7
     Dates: start: 20161209, end: 20170403
  20. TEDUGLUTIDE [Suspect]
     Active Substance: TEDUGLUTIDE
     Dosage: 3 MILLIGRAM (DAILY DOSE 0.05 MG/KG), TED DOSES PER WEEK 7
     Route: 065
     Dates: start: 20180130, end: 20180219
  21. TEDUGLUTIDE [Suspect]
     Active Substance: TEDUGLUTIDE
     Dosage: 3 MILLIGRAM (DAILY DOSE 0.05 MG/KG), TED DOSES PER WEEK 7
     Route: 065
     Dates: start: 20180130, end: 20180219
  22. TEDUGLUTIDE [Suspect]
     Active Substance: TEDUGLUTIDE
     Dosage: 3 MILLIGRAM (DAILY DOSE 0.05 MG/KG), TED DOSES PER WEEK 7
     Route: 065
     Dates: start: 20180308, end: 20180313
  23. NACL [Concomitant]
     Active Substance: SODIUM CHLORIDE
     Indication: HYPERKALAEMIA
     Dosage: 4 LITER
     Route: 065
     Dates: start: 201802, end: 201802
  24. TEDUGLUTIDE [Suspect]
     Active Substance: TEDUGLUTIDE
     Dosage: 3 MILLIGRAM (DAILY DOSE 0.05 MG/KG), TED DOSES PER WEEK 7
     Route: 065
     Dates: start: 20180308, end: 20180313
  25. GLUCOSE;INSULIN [Concomitant]
     Indication: HYPERKALAEMIA
     Dosage: 1 UNKNOWN UNIT, QD
     Route: 065
     Dates: start: 20180308, end: 20180308
  26. TEDUGLUTIDE [Suspect]
     Active Substance: TEDUGLUTIDE
     Dosage: 3.2 MILLIGRAM (DAILY DOSE 0.05 MG/KG), TED DOSES PER WEEK 7
     Route: 065
     Dates: start: 20171017, end: 20180129
  27. TEDUGLUTIDE [Suspect]
     Active Substance: TEDUGLUTIDE
     Indication: SHORT-BOWEL SYNDROME
     Dosage: 3.6 MILLIGRAM (DAILY DOSE 0.05 MG/KG), TED DOSES PER WEEK 7
     Route: 065
     Dates: start: 20161004, end: 20161103
  28. TEDUGLUTIDE [Suspect]
     Active Substance: TEDUGLUTIDE
     Dosage: 3.6 MILLIGRAM (DAILY DOSE 0.05 MG/KG), TED DOSES PER WEEK 7
     Dates: start: 20161209, end: 20170403
  29. TEDUGLUTIDE [Suspect]
     Active Substance: TEDUGLUTIDE
     Dosage: 3.4 MILLIGRAM (DAILY DOSE 0.05 MG/KG), TED DOSES PER WEEK 7
     Route: 065
     Dates: start: 20170404, end: 20171016
  30. TEDUGLUTIDE [Suspect]
     Active Substance: TEDUGLUTIDE
     Dosage: 3.4 MILLIGRAM (DAILY DOSE 0.05 MG/KG), TED DOSES PER WEEK 7
     Route: 065
     Dates: start: 20170404, end: 20171016
  31. TEDUGLUTIDE [Suspect]
     Active Substance: TEDUGLUTIDE
     Dosage: 3.2 MILLIGRAM (DAILY DOSE 0.05 MG/KG), TED DOSES PER WEEK 7
     Route: 065
     Dates: start: 20171017, end: 20180129
  32. TEDUGLUTIDE [Suspect]
     Active Substance: TEDUGLUTIDE
     Dosage: 3 MILLIGRAM (DAILY DOSE 0.05 MG/KG), TED DOSES PER WEEK 7
     Route: 065
     Dates: start: 20180308, end: 20180313

REACTIONS (1)
  - Syncope [Recovered/Resolved]

NARRATIVE: CASE EVENT DATE: 20200626
